FAERS Safety Report 6951398-1 (Version None)
Quarter: 2010Q3

REPORT INFORMATION
  Report Type: 
  Country: None (occurrence: None)
  Receive Date: 20100828
  Receipt Date: 20100322
  Transmission Date: 20110219
  Serious: No
  Sender: FDA-Public Use
  Company Number: US-ABBOTT-10P-163-0634503-00

PATIENT
  Sex: Female
  Weight: 70.37 kg

DRUGS (6)
  1. NIASPAN [Suspect]
     Indication: BLOOD CHOLESTEROL INCREASED
     Dates: start: 20100308
  2. GINKGO BILOBA [Concomitant]
     Indication: PRODUCT USED FOR UNKNOWN INDICATION
  3. METHYLSULFONYLMETHANE [Concomitant]
     Indication: ARTHROPATHY
  4. CHANGE OF LIFE [Concomitant]
     Indication: PHYTOTHERAPY
  5. OMEGA 3-6-9 [Concomitant]
     Indication: PRODUCT USED FOR UNKNOWN INDICATION
  6. BREWERS YEAST [Concomitant]
     Indication: ALOPECIA

REACTIONS (6)
  - CONSTIPATION [None]
  - FLATULENCE [None]
  - FLUSHING [None]
  - PAIN IN EXTREMITY [None]
  - PARAESTHESIA [None]
  - WRONG TECHNIQUE IN DRUG USAGE PROCESS [None]
